FAERS Safety Report 5608827-5 (Version None)
Quarter: 2008Q1

REPORT INFORMATION
  Report Type: 
  Country: None (occurrence: None)
  Receive Date: 20080131
  Receipt Date: 20080122
  Transmission Date: 20080703
  Serious: Yes (Hospitalization)
  Sender: FDA-Public Use
  Company Number: FR-TEVA-166696ISR

PATIENT
  Sex: Female

DRUGS (7)
  1. FLUOROURACIL [Suspect]
     Route: 042
     Dates: start: 20071022, end: 20071026
  2. CISPLATIN [Suspect]
     Route: 042
     Dates: start: 20071022, end: 20071026
  3. ALIZAPRIDE HYDROCHLORIDE [Suspect]
     Route: 042
     Dates: start: 20071022, end: 20071026
  4. METHYLPREDNISOLONE [Suspect]
     Route: 042
     Dates: start: 20071022, end: 20071026
  5. ONDANSETRON HYDROCHLORIDE [Suspect]
     Route: 042
     Dates: start: 20071022, end: 20071026
  6. FUROSEMIDE [Suspect]
     Route: 042
     Dates: start: 20071022, end: 20071026
  7. APREPITANT [Concomitant]
     Indication: PROPHYLAXIS OF NAUSEA AND VOMITING
     Route: 048

REACTIONS (2)
  - EPILEPSY [None]
  - HYPOCALCAEMIA [None]
